FAERS Safety Report 9556989 (Version 1)
Quarter: 2013Q3

REPORT INFORMATION
  Report Type: Spontaneous
  Country: GB (occurrence: GB)
  Receive Date: 20130926
  Receipt Date: 20130926
  Transmission Date: 20140515
  Serious: Yes (Congenital Anomaly)
  Sender: FDA-Public Use
  Company Number: PHHY2013GB103668

PATIENT
  Sex: Female
  Weight: 10 kg

DRUGS (1)
  1. LEVETIRACETAM [Suspect]
     Dosage: UNK (MOTHER TOOK ORALLY DURING PREGNANCY)
     Route: 064

REACTIONS (2)
  - Cerebral cyst [Unknown]
  - Periventricular nodular heterotopia [Unknown]
